FAERS Safety Report 13284876 (Version 1)
Quarter: 2017Q1

REPORT INFORMATION
  Report Type: Spontaneous
  Country: US (occurrence: US)
  Receive Date: 20170301
  Receipt Date: 20170301
  Transmission Date: 20170428
  Serious: No
  Sender: FDA-Public Use
  Company Number: None

PATIENT
  Age: 11 Year
  Sex: Male

DRUGS (1)
  1. GENERIC ABILIFY 5-10MG [Suspect]
     Active Substance: ARIPIPRAZOLE
     Indication: BIPOLAR DISORDER
     Route: 048
     Dates: start: 201503, end: 201507

REACTIONS (3)
  - Product substitution issue [None]
  - Psychotic disorder [None]
  - Condition aggravated [None]

NARRATIVE: CASE EVENT DATE: 201503
